FAERS Safety Report 12470635 (Version 1)
Quarter: 2016Q2

REPORT INFORMATION
  Report Type: Spontaneous
  Country: TN (occurrence: TN)
  Receive Date: 20160616
  Receipt Date: 20160616
  Transmission Date: 20160815
  Serious: Yes (Other)
  Sender: FDA-Public Use
  Company Number: TN-SUN PHARMACEUTICAL INDUSTRIES LTD-2016RR-118574

PATIENT
  Age: 63 Year
  Sex: Male

DRUGS (2)
  1. ZOLPIDEM [Suspect]
     Active Substance: ZOLPIDEM\ZOLPIDEM TARTRATE
     Indication: INSOMNIA
     Dosage: GRADUALLY INCREASED THE DOSE
     Route: 065
  2. ZOLPIDEM [Suspect]
     Active Substance: ZOLPIDEM\ZOLPIDEM TARTRATE
     Indication: INSOMNIA
     Dosage: AT BED TIME
     Route: 065

REACTIONS (5)
  - Drug withdrawal syndrome [Unknown]
  - Major depression [Unknown]
  - Drug ineffective [Unknown]
  - Drug dependence [Unknown]
  - Drug abuse [Unknown]
